FAERS Safety Report 4340371-8 (Version None)
Quarter: 2004Q2

REPORT INFORMATION
  Report Type: 
  Country: None (occurrence: None)
  Receive Date: 20040409
  Receipt Date: 20040325
  Transmission Date: 20050107
  Serious: No
  Sender: FDA-Public Use
  Company Number: CART-10328

PATIENT
  Age: 38 Year
  Sex: Female

DRUGS (1)
  1. CARTICEL [Suspect]
     Indication: BONE DISORDER
     Dosage: 1 NA ONCE IS
     Dates: start: 19991214, end: 19991214

REACTIONS (5)
  - ADHESION [None]
  - ARTHROFIBROSIS [None]
  - CHONDROMALACIA [None]
  - GRAFT COMPLICATION [None]
  - MUSCULOSKELETAL STIFFNESS [None]
